FAERS Safety Report 10009856 (Version 2)
Quarter: 2014Q1

REPORT INFORMATION
  Report Type: Spontaneous
  Country: US (occurrence: US)
  Receive Date: 20140312
  Receipt Date: 20140312
  Transmission Date: 20141002
  Serious: No
  Sender: FDA-Public Use
  Company Number: US-INCYTE CORPORATION-2012IN001941

PATIENT
  Age: 54 Year
  Sex: Male
  Weight: 115.65 kg

DRUGS (8)
  1. JAKAFI [Suspect]
     Indication: MYELOFIBROSIS
     Dosage: 20 MG, BID
     Dates: start: 20120904, end: 20120919
  2. JAKAFI [Suspect]
     Dosage: 20 MG, QD
     Dates: start: 20120920, end: 20120927
  3. ASPIRIN [Concomitant]
     Dosage: 325 MG, QD
  4. MULTIVITAMIN [Concomitant]
     Dosage: UNK, QD
  5. ALLOPURINOL [Concomitant]
     Dosage: 300 MG, QD
  6. LASIX [Concomitant]
     Dosage: 20 MG, QD
  7. INDOCIN [Concomitant]
     Dosage: 50 MG, 1 Q 8 H FOR 5 DAYS
  8. HYDREA [Concomitant]
     Dosage: 500 MG, QD

REACTIONS (5)
  - Alanine aminotransferase increased [Unknown]
  - Aspartate aminotransferase increased [Unknown]
  - Anaemia [Recovering/Resolving]
  - Thrombocytopenia [Recovered/Resolved]
  - White blood cell count decreased [Recovering/Resolving]
